FAERS Safety Report 5353438-2 (Version None)
Quarter: 2007Q2

REPORT INFORMATION
  Report Type: 
  Country: None (occurrence: None)
  Receive Date: 20070612
  Receipt Date: 20070601
  Transmission Date: 20071010
  Serious: Yes (Hospitalization)
  Sender: FDA-Public Use
  Company Number: PHBS2007JP03541

PATIENT
  Age: 32 Year
  Sex: Male
  Weight: 70 kg

DRUGS (4)
  1. TEGRETOL [Suspect]
     Indication: HEADACHE
     Dosage: 200 MG, QD
     Route: 048
     Dates: start: 20060707, end: 20060709
  2. TEGRETOL [Suspect]
     Dosage: 200 MG, TID
     Route: 048
     Dates: start: 20060710, end: 20060713
  3. TEGRETOL [Suspect]
     Dosage: 200 MG, BID
     Route: 048
     Dates: start: 20060714, end: 20060715
  4. TEGRETOL [Suspect]
     Dosage: 200 MG, TID
     Route: 048
     Dates: start: 20060716, end: 20060723

REACTIONS (5)
  - BRAIN DAMAGE [None]
  - CRANIAL NERVE DISORDER [None]
  - HEADACHE [None]
  - INTRACRANIAL HYPOTENSION [None]
  - NUCLEAR MAGNETIC RESONANCE IMAGING ABNORMAL [None]
